FAERS Safety Report 24821169 (Version 1)
Quarter: 2025Q1

REPORT INFORMATION
  Report Type: Spontaneous
  Country: US (occurrence: US)
  Receive Date: 20250108
  Receipt Date: 20250108
  Transmission Date: 20250408
  Serious: No
  Sender: SANOFI AVENTIS
  Company Number: US-SA-2025SA003118

PATIENT
  Sex: Female

DRUGS (2)
  1. DUPIXENT [Suspect]
     Active Substance: DUPILUMAB
     Dates: start: 202310, end: 202401
  2. METHOTREXATE [Concomitant]
     Active Substance: METHOTREXATE
     Dates: start: 202403

REACTIONS (5)
  - Skin injury [Unknown]
  - Sensitive skin [Unknown]
  - Swelling [Unknown]
  - Mobility decreased [Unknown]
  - Treatment failure [Unknown]
